FAERS Safety Report 6012418-4 (Version None)
Quarter: 2008Q4

REPORT INFORMATION
  Report Type: 
  Country: None (occurrence: None)
  Receive Date: 20081218
  Receipt Date: 20081021
  Transmission Date: 20090506
  Serious: No
  Sender: FDA-Public Use
  Company Number: US-ASTRAZENECA-2008UW23507

PATIENT
  Age: 28 Year
  Sex: Female
  Weight: 59 kg

DRUGS (4)
  1. SYMBICORT [Suspect]
     Indication: ASTHMA
     Dosage: 160/4.5 MCG
     Route: 055
     Dates: end: 20080901
  2. ZYRTEC [Concomitant]
  3. ALBUTEROL [Concomitant]
  4. NASAL STEROID [Concomitant]
     Route: 045

REACTIONS (1)
  - WEIGHT INCREASED [None]
